FAERS Safety Report 15847529 (Version 1)
Quarter: 2019Q1

REPORT INFORMATION
  Report Type: Spontaneous
  Country: DE (occurrence: DE)
  Receive Date: 20190121
  Receipt Date: 20190121
  Transmission Date: 20190417
  Serious: Yes (Other)
  Sender: FDA-Public Use
  Company Number: DE-SUN PHARMACEUTICAL INDUSTRIES LTD-2019RR-196599

PATIENT
  Age: 53 Year
  Sex: Female
  Weight: 103 kg

DRUGS (8)
  1. FREMANEZUMAB [Suspect]
     Active Substance: FREMANEZUMAB
     Indication: MIGRAINE
     Dosage: OL: ACTIVE TREATMENT PHASE
     Route: 058
     Dates: start: 20180924
  2. CITALOPRAM [Concomitant]
     Active Substance: CITALOPRAM HYDROBROMIDE
     Indication: DEPRESSION
     Dosage: 40 MILLIGRAM DAILY;
     Route: 048
     Dates: start: 1999
  3. FREMANEZUMAB [Suspect]
     Active Substance: FREMANEZUMAB
     Dosage: DB: FREMANEZUMAB 675MG OR 225MG OR 675MG FOLLOWED BY 225MG OR PLACEBO ()
     Route: 058
     Dates: start: 20180702, end: 20180827
  4. L-THYROXIN [Concomitant]
     Active Substance: LEVOTHYROXINE SODIUM
     Indication: AUTOIMMUNE THYROIDITIS
     Dosage: 50 MICROGRAM DAILY;
     Route: 048
     Dates: start: 1992
  5. VELMETIA [Suspect]
     Active Substance: METFORMIN\SITAGLIPTIN
     Indication: TYPE 2 DIABETES MELLITUS
     Dosage: 50/1000 MG ()
     Route: 048
     Dates: start: 2008
  6. YASMIN [Concomitant]
     Active Substance: DROSPIRENONE\ETHINYL ESTRADIOL
     Indication: CONTRACEPTION
     Dosage: ()
     Route: 048
     Dates: start: 1998
  7. OMEPRAZOL [Suspect]
     Active Substance: OMEPRAZOLE
     Indication: GASTRITIS
     Dosage: 20 MILLIGRAM DAILY;
     Route: 048
     Dates: start: 2008
  8. EUNOVA B12 [Concomitant]
     Indication: PROPHYLAXIS
     Dosage: DAILY ()
     Route: 048
     Dates: start: 201801

REACTIONS (1)
  - Diverticulitis [Recovered/Resolved]

NARRATIVE: CASE EVENT DATE: 20181011
